FAERS Safety Report 4680268-7 (Version None)
Quarter: 2005Q2

REPORT INFORMATION
  Report Type: 
  Country: None (occurrence: None)
  Receive Date: 20050601
  Receipt Date: 20050519
  Transmission Date: 20051028
  Serious: Yes (Hospitalization)
  Sender: FDA-Public Use
  Company Number: ITWYE447422FEB05

PATIENT
  Age: 41 Year
  Sex: Male

DRUGS (19)
  1. GEMTUZUMAB OZOGAMICIN (GEMTUZUMAB OZOGAMICIN, INJECTION) [Suspect]
     Indication: ACUTE PROMYELOCYTIC LEUKAEMIA
     Dosage: 10.2 MG 1X PER 1 DAY
     Dates: start: 20050126, end: 20050126
  2. FEXOFENADINE HCL [Concomitant]
  3. ESOMEPRAZOLE (ESOMEPRAZOLE) [Concomitant]
  4. MAGALDRATE (MAGALDRATE) [Concomitant]
  5. DEXAMETHASONE [Concomitant]
  6. CHLORPHENAMINE (CHLORPHENAMINE) [Concomitant]
  7. ONDANSETRON HCL [Concomitant]
  8. ELECTROLYTE SOLUTIONS (ELECTROLYTE SOLUTIONS) [Concomitant]
  9. SODIUM BICARBONATE IN PLASTIC CONTAINER [Concomitant]
  10. ALLOPURINOL [Concomitant]
  11. LEVOFLOXACIN [Concomitant]
  12. FLUCONAZOLE [Concomitant]
  13. TEICOPLANIN (TEICOPLANIN) [Concomitant]
  14. FOLIC ACID [Concomitant]
  15. METHYLPREDNISOLONE [Concomitant]
  16. TETRACYCLINE [Concomitant]
  17. HEPARIN SODIUM [Concomitant]
  18. TRANEXAMIC ACID (TRANEXAMIC ACID) [Concomitant]
  19. URSODIOL [Concomitant]

REACTIONS (6)
  - BALANOPOSTHITIS [None]
  - HAEMOGLOBIN DECREASED [None]
  - NEUTROPENIA [None]
  - PLATELET COUNT DECREASED [None]
  - PSEUDOMONAS INFECTION [None]
  - STAPHYLOCOCCAL SEPSIS [None]
